FAERS Safety Report 7424222-0 (Version None)
Quarter: 2011Q2

REPORT INFORMATION
  Report Type: 
  Country: None (occurrence: None)
  Receive Date: 20110419
  Receipt Date: 20110214
  Transmission Date: 20111010
  Serious: Yes (Other)
  Sender: FDA-Public Use
  Company Number: US-BAYER-201018636NA

PATIENT
  Age: 46 Year
  Sex: Female
  Weight: 72.562 kg

DRUGS (8)
  1. YASMIN [Suspect]
     Route: 048
     Dates: start: 20090101
  2. OCELLA [Suspect]
     Indication: DYSMENORRHOEA
     Dosage: UNK
     Route: 048
     Dates: start: 20080101, end: 20090101
  3. LIPITOR [Concomitant]
  4. DIURETICS [Concomitant]
  5. ASCORBIC ACID [Concomitant]
  6. ALBUTEROL [Concomitant]
  7. YASMIN [Suspect]
     Indication: DYSMENORRHOEA
     Dosage: UNK
     Route: 048
     Dates: start: 20040101, end: 20080315
  8. POTASSIUM [POTASSIUM] [Concomitant]

REACTIONS (3)
  - CONVULSION [None]
  - GALLBLADDER DISORDER [None]
  - GALLBLADDER CHOLESTEROLOSIS [None]
